FAERS Safety Report 24535552 (Version 1)
Quarter: 2024Q4

REPORT INFORMATION
  Report Type: Spontaneous
  Country: JP (occurrence: JP)
  Receive Date: 20241022
  Receipt Date: 20241022
  Transmission Date: 20250115
  Serious: Yes (Other)
  Sender: MERCK
  Company Number: JP-009507513-2410JPN009481

PATIENT
  Age: 58 Year
  Sex: Male

DRUGS (1)
  1. PEMBROLIZUMAB [Suspect]
     Active Substance: PEMBROLIZUMAB
     Indication: Head and neck cancer
     Dosage: UNK

REACTIONS (1)
  - Immune-mediated endocrinopathy [Unknown]
